FAERS Safety Report 26118418 (Version 2)
Quarter: 2025Q4

REPORT INFORMATION
  Report Type: Report from Study
  Country: US (occurrence: None)
  Receive Date: 20251203
  Receipt Date: 20251217
  Transmission Date: 20260117
  Serious: Yes (Other)
  Sender: UCB
  Company Number: US-UCBSA-2025034615

PATIENT
  Age: 33 Year

DRUGS (3)
  1. BIMEKIZUMAB [Suspect]
     Active Substance: BIMEKIZUMAB
     Indication: Hidradenitis
     Dosage: 320 MILLIGRAM, EV 2 WEEKS(QOW) TILL WEEK 16 AND MAINTENANCE DOSE: 320 MG EVERY FOUR WEEKS
  2. CLINDAGEL [Concomitant]
     Active Substance: CLINDAMYCIN PHOSPHATE
     Indication: Product used for unknown indication
     Dosage: 1 % GEL DAILY
  3. ESCITALOPRAM OXALATE [Concomitant]
     Active Substance: ESCITALOPRAM OXALATE
     Indication: Product used for unknown indication
     Dosage: 10 MILLIGRAM

REACTIONS (13)
  - Bone operation [Recovered/Resolved]
  - Osteomyelitis [Not Recovered/Not Resolved]
  - Injection site erythema [Not Recovered/Not Resolved]
  - Injection site pain [Recovered/Resolved]
  - Injection site rash [Not Recovered/Not Resolved]
  - Injection site bruising [Not Recovered/Not Resolved]
  - Fatigue [Not Recovered/Not Resolved]
  - Headache [Not Recovered/Not Resolved]
  - Fungal infection [Not Recovered/Not Resolved]
  - Hidradenitis [Recovered/Resolved]
  - Condition aggravated [Recovered/Resolved]
  - Dizziness [Not Recovered/Not Resolved]
  - Intentional dose omission [Unknown]
